FAERS Safety Report 14988788 (Version 1)
Quarter: 2018Q2

REPORT INFORMATION
  Report Type: Spontaneous
  Country: IT (occurrence: IT)
  Receive Date: 20180608
  Receipt Date: 20180608
  Transmission Date: 20180711
  Serious: Yes (Other)
  Sender: FDA-Public Use
  Company Number: PHHY2018IT017218

PATIENT
  Age: 69 Year
  Sex: Male

DRUGS (4)
  1. METHADONE HYDROCHLORIDE. [Concomitant]
     Active Substance: METHADONE HYDROCHLORIDE
     Indication: DRUG DEPENDENCE
     Dosage: 18 MG, QD
     Route: 048
     Dates: start: 20170101
  2. MIRTAZAPINE. [Concomitant]
     Active Substance: MIRTAZAPINE
     Indication: AFFECTIVE DISORDER
     Dosage: UNK
     Route: 048
  3. QUETIAPINE. [Suspect]
     Active Substance: QUETIAPINE
     Indication: HYPNOTHERAPY
     Dosage: UNK
     Route: 048
  4. DEPAKIN [Concomitant]
     Active Substance: VALPROATE SODIUM
     Indication: AFFECTIVE DISORDER
     Dosage: UNK
     Route: 065

REACTIONS (3)
  - Extrapyramidal disorder [Recovering/Resolving]
  - Dyskinesia [Recovering/Resolving]
  - IVth nerve disorder [Recovering/Resolving]

NARRATIVE: CASE EVENT DATE: 20180314
